FAERS Safety Report 4639829-3 (Version None)
Quarter: 2005Q2

REPORT INFORMATION
  Report Type: 
  Country: None (occurrence: None)
  Receive Date: 20050415
  Receipt Date: 20050411
  Transmission Date: 20051028
  Serious: Yes (Death)
  Sender: FDA-Public Use
  Company Number: 05P-163-0297028

PATIENT
  Age: 42 Year
  Sex: Male

DRUGS (5)
  1. NORVIR [Suspect]
     Indication: HIV INFECTION
     Dosage: 100 MG, PER ORAL
     Route: 048
     Dates: start: 20041222
  2. TIPRANAVIR [Concomitant]
  3. TRUVADA [Concomitant]
  4. FUZEON [Concomitant]
  5. BUPROPION HYDROCHLORIDE [Concomitant]

REACTIONS (1)
  - DEATH [None]
